FAERS Safety Report 22885498 (Version 8)
Quarter: 2023Q4

REPORT INFORMATION
  Report Type: Other
  Country: US (occurrence: None)
  Receive Date: 20230831
  Receipt Date: 20231103
  Transmission Date: 20240109
  Serious: Yes (Hospitalization)
  Sender: FDA-Public Use
  Company Number: US-ROCHE-3412774

PATIENT
  Age: 75 Year
  Sex: Female
  Weight: 63.56 kg

DRUGS (3)
  1. OCREVUS [Suspect]
     Active Substance: OCRELIZUMAB
     Indication: Primary progressive multiple sclerosis
     Dosage: 300 MG EVERY 2 WEEKS THEN 600 MG EVERY 6 MONTHS, 06-FEB-2023, 04-AUG-2022, 09-FEB-2022, 26-JAN-2022
     Route: 042
     Dates: start: 2021
  2. OCREVUS [Suspect]
     Active Substance: OCRELIZUMAB
     Route: 042
     Dates: start: 2020
  3. ATORVASTATIN [Concomitant]
     Active Substance: ATORVASTATIN
     Indication: Blood cholesterol
     Dosage: THE PATIENT STARTED MAYBE 5 YEARS AGO AND PROBABLY TAKES THE AVERAGE DOSE
     Route: 048

REACTIONS (6)
  - Urinary tract infection [Recovered/Resolved]
  - Pain [Recovered/Resolved]
  - Muscular weakness [Recovered/Resolved]
  - Off label use [Unknown]
  - Diarrhoea [Recovered/Resolved]
  - Brain fog [Recovered/Resolved]

NARRATIVE: CASE EVENT DATE: 20210101
